FAERS Safety Report 8160073-X (Version None)
Quarter: 2012Q1

REPORT INFORMATION
  Report Type: 
  Country: None (occurrence: None)
  Receive Date: 20120223
  Receipt Date: 20120214
  Transmission Date: 20120608
  Serious: Yes (Other)
  Sender: FDA-Public Use
  Company Number: PHHY2012BR013786

PATIENT
  Sex: Female

DRUGS (7)
  1. DIOVAN HCT [Suspect]
     Dosage: 1 DF (160 MG VALS, 12.5 MG HYDRO), QD
  2. CYTARABINE [Concomitant]
     Indication: EAR DISORDER
     Dosage: 1 DF, AT NIGHT
  3. DIOVAN HCT [Suspect]
     Indication: ARRHYTHMIA
     Dosage: 1 DF (80 MG VALS AND 12.5 MG HYDRO), QD
  4. ATENOLOL [Suspect]
     Dosage: 1 DF, DAILY
  5. CLONAZEPAM [Concomitant]
     Indication: HEADACHE
     Dosage: 2 DF, DAILY
  6. DIOVAN HCT [Suspect]
     Dosage: 1.5 DF1.5 DF (160 MG VALS AND 12.5 MG HYDRO), QD
  7. TENORETIC 100 [Suspect]
     Dosage: 1 DF, QD

REACTIONS (7)
  - FALL [None]
  - GAIT DISTURBANCE [None]
  - HYPOACUSIS [None]
  - PELVIC ORGAN INJURY [None]
  - HYPERTENSION [None]
  - EFFUSION [None]
  - VISUAL ACUITY REDUCED [None]
